FAERS Safety Report 11082505 (Version 2)
Quarter: 2015Q2

REPORT INFORMATION
  Report Type: Report from Study
  Country: US (occurrence: US)
  Receive Date: 20150501
  Receipt Date: 20150603
  Transmission Date: 20150821
  Serious: Yes (Other)
  Sender: FDA-Public Use
  Company Number: US-SA-2014SA155611

PATIENT
  Age: 26 Year
  Sex: Female

DRUGS (1)
  1. AUBAGIO [Suspect]
     Active Substance: TERIFLUNOMIDE
     Indication: MULTIPLE SCLEROSIS
     Route: 048
     Dates: start: 20140501

REACTIONS (4)
  - Micturition urgency [Unknown]
  - Accident [Unknown]
  - Foot fracture [Recovering/Resolving]
  - Pollakiuria [Unknown]

NARRATIVE: CASE EVENT DATE: 201501
